FAERS Safety Report 10273637 (Version 2)
Quarter: 2014Q3

REPORT INFORMATION
  Report Type: Report from Study
  Country: FR (occurrence: FR)
  Receive Date: 20140702
  Receipt Date: 20140717
  Transmission Date: 20150326
  Serious: Yes (Life-Threatening, Hospitalization, Other)
  Sender: FDA-Public Use
  Company Number: PHHY2014FR081163

PATIENT
  Age: 78 Year
  Sex: Female

DRUGS (1)
  1. AMN107 [Suspect]
     Active Substance: NILOTINIB
     Indication: CHRONIC MYELOID LEUKAEMIA
     Dosage: 600 MG, UNK
     Route: 048
     Dates: start: 20130523

REACTIONS (4)
  - Second primary malignancy [Recovering/Resolving]
  - Lung neoplasm malignant [Recovering/Resolving]
  - Pleural effusion [Unknown]
  - Mucoepidermoid carcinoma [Unknown]

NARRATIVE: CASE EVENT DATE: 20140310
